FAERS Safety Report 4701909-1 (Version None)
Quarter: 2005Q2

REPORT INFORMATION
  Report Type: 
  Country: None (occurrence: None)
  Receive Date: 20050627
  Receipt Date: 20050613
  Transmission Date: 20051028
  Serious: Yes (Other)
  Sender: FDA-Public Use
  Company Number: 2005089366

PATIENT
  Sex: Female

DRUGS (3)
  1. CELEBREX [Suspect]
     Indication: BACK PAIN
     Dosage: (1 IN 1 D), ORAL
     Route: 048
  2. ARTHROTEC (DICLOFENAC SODIUM MISOPROSTOL0 [Concomitant]
     Indication: BACK PAIN
     Dosage: ORAL
     Route: 048
  3. ANTIHYPERTENSIVES (ANTIHYPERTENSIVES) [Concomitant]

REACTIONS (7)
  - CATARACT OPERATION [None]
  - DIARRHOEA [None]
  - DRUG EFFECT DECREASED [None]
  - FEELING ABNORMAL [None]
  - KNEE OPERATION [None]
  - NAUSEA [None]
  - STOMACH DISCOMFORT [None]
